FAERS Safety Report 7975198-9 (Version None)
Quarter: 2011Q4

REPORT INFORMATION
  Report Type: 
  Country: None (occurrence: None)
  Receive Date: 20111213
  Receipt Date: 20111103
  Transmission Date: 20120403
  Serious: Yes (Other)
  Sender: FDA-Public Use
  Company Number: US-AMGEN-USASP2011057617

PATIENT
  Age: 57 Year
  Sex: Female

DRUGS (3)
  1. ENBREL [Suspect]
     Indication: SYSTEMIC LUPUS ERYTHEMATOSUS
     Dosage: 50 MG, QWK
     Dates: start: 20110915, end: 20111021
  2. ENBREL [Suspect]
     Indication: ARTHRITIS
  3. ENBREL [Suspect]
     Indication: COELIAC DISEASE

REACTIONS (8)
  - KIDNEY INFECTION [None]
  - SINUS CONGESTION [None]
  - MOOD ALTERED [None]
  - MYALGIA [None]
  - COUGH [None]
  - MIGRAINE [None]
  - NASOPHARYNGITIS [None]
  - RHINORRHOEA [None]
